FAERS Safety Report 4798705-6 (Version None)
Quarter: 2005Q4

REPORT INFORMATION
  Report Type: 
  Country: None (occurrence: None)
  Receive Date: 20051014
  Receipt Date: 20051004
  Transmission Date: 20060501
  Serious: Yes (Other)
  Sender: FDA-Public Use
  Company Number: US-MERCK-0510USA03192

PATIENT
  Age: 52 Year
  Sex: Female
  Weight: 80 kg

DRUGS (11)
  1. VIOXX [Suspect]
     Indication: ARTHRALGIA
     Route: 048
     Dates: start: 20010901, end: 20030131
  2. VIOXX [Suspect]
     Indication: MYALGIA
     Route: 048
     Dates: start: 20010901, end: 20030131
  3. SULFATRIM-DS [Concomitant]
     Route: 048
  4. PROTONIX [Concomitant]
     Route: 048
  5. LASIX [Concomitant]
     Route: 048
  6. ACTIMMUNE [Concomitant]
     Route: 065
  7. ZYRTEC [Concomitant]
     Route: 048
  8. ALPRAZOLAM [Concomitant]
     Route: 048
  9. AMBIEN [Concomitant]
     Route: 048
  10. DIOVAN [Concomitant]
     Route: 048
  11. PREDNISONE [Concomitant]
     Route: 048

REACTIONS (4)
  - ANXIETY [None]
  - DEPRESSION [None]
  - MYOCARDIAL INFARCTION [None]
  - PANIC ATTACK [None]
